FAERS Safety Report 8224839-X (Version None)
Quarter: 2012Q1

REPORT INFORMATION
  Report Type: 
  Country: None (occurrence: None)
  Receive Date: 20120321
  Receipt Date: 20120305
  Transmission Date: 20120608
  Serious: No
  Sender: FDA-Public Use
  Company Number: US-B.I. PHARMACEUTICALS,INC./RIDGEFIELD-2012-BP-04175BP

PATIENT
  Sex: Female

DRUGS (8)
  1. SPIRIVA [Suspect]
     Indication: CHRONIC OBSTRUCTIVE PULMONARY DISEASE
     Dosage: 18 MCG
     Route: 055
     Dates: start: 20120128, end: 20120303
  2. ZOLOFT [Concomitant]
     Indication: ANXIETY
     Dosage: 100 MG
     Route: 048
     Dates: start: 20020101
  3. PROTONIX [Concomitant]
     Indication: GASTROOESOPHAGEAL REFLUX PROPHYLAXIS
     Dosage: 40 MG
     Route: 048
  4. SYMBICORT [Concomitant]
     Indication: ASTHMA
  5. SYNTHROID [Concomitant]
     Indication: THYROID DISORDER
     Dosage: 75 MCG
     Route: 048
     Dates: start: 20070101
  6. MUCINEX [Concomitant]
     Indication: PULMONARY CONGESTION
     Dosage: 1200 MG
     Route: 048
     Dates: start: 20111220
  7. PREDNISONE TAPER [Concomitant]
     Indication: ASTHMA
     Dates: start: 20120222, end: 20120303
  8. THEOPHYLLINE [Concomitant]
     Indication: ASTHMA
     Dosage: 200 MG
     Route: 048

REACTIONS (6)
  - SPUTUM INCREASED [None]
  - SINUS DISORDER [None]
  - BLOOD POTASSIUM DECREASED [None]
  - LUNG DISORDER [None]
  - DRY MOUTH [None]
  - SINUSITIS [None]
